FAERS Safety Report 18718792 (Version 2)
Quarter: 2021Q1

REPORT INFORMATION
  Report Type: Spontaneous
  Country: FR (occurrence: FR)
  Receive Date: 20210108
  Receipt Date: 20210113
  Transmission Date: 20210419
  Serious: Yes (Other)
  Sender: FDA-Public Use
  Company Number: NVSC2021FR001637

PATIENT
  Age: 74 Year
  Sex: Female

DRUGS (2)
  1. LEVETIRACETAM. [Suspect]
     Active Substance: LEVETIRACETAM
     Indication: STATUS EPILEPTICUS
  2. LEVETIRACETAM. [Suspect]
     Active Substance: LEVETIRACETAM
     Indication: SEIZURE
     Dosage: 500 MILLIGRAM, BID IN 48 HOURS
     Route: 048

REACTIONS (6)
  - Mania [Recovered/Resolved]
  - Logorrhoea [Recovered/Resolved]
  - Patient elopement [Recovered/Resolved]
  - Behaviour disorder [Recovered/Resolved]
  - Affect lability [Recovered/Resolved]
  - Psychomotor hyperactivity [Recovered/Resolved]
